FAERS Safety Report 12970633 (Version 1)
Quarter: 2016Q4

REPORT INFORMATION
  Report Type: Spontaneous
  Country: FR (occurrence: FR)
  Receive Date: 20161123
  Receipt Date: 20161123
  Transmission Date: 20170207
  Serious: Yes (Other)
  Sender: FDA-Public Use
  Company Number: FR-TEVA-712777ROM

PATIENT
  Age: 75 Year
  Sex: Male

DRUGS (3)
  1. LERCANIDIPINE 10 MG [Concomitant]
     Dosage: 1 DOSAGE FORMS DAILY;
     Dates: start: 2014
  2. BISOPROLOL 5 MG [Concomitant]
     Active Substance: BISOPROLOL
     Dosage: 1 DOSAGE FORMS DAILY;
     Dates: start: 2014
  3. AMILORIDE HYDROCHLOROTHIAZIDE TEVA 5 MG/50 MG [Suspect]
     Active Substance: AMILORIDE HYDROCHLORIDE\HYDROCHLOROTHIAZIDE
     Indication: HYPERTENSION
     Route: 048
     Dates: start: 2014

REACTIONS (2)
  - Tongue oedema [Recovered/Resolved]
  - Lip swelling [Recovered/Resolved]

NARRATIVE: CASE EVENT DATE: 20161105
